FAERS Safety Report 15207378 (Version 1)
Quarter: 2018Q3

REPORT INFORMATION
  Report Type: Spontaneous
  Country: US (occurrence: US)
  Receive Date: 20180727
  Receipt Date: 20180727
  Transmission Date: 20181010
  Serious: Yes (Life-Threatening, Other)
  Sender: FDA-Public Use
  Company Number: US-MYLANLABS-2018M1056676

PATIENT
  Age: 76 Year
  Sex: Female

DRUGS (7)
  1. IDARUBICIN [Suspect]
     Active Substance: IDARUBICIN
     Indication: ACUTE PROMYELOCYTIC LEUKAEMIA
     Dosage: CONSOLIDATION CHEMOTHERAPY CONSISTING OF INTERMITTENT IDARUBICIN ; CYCLICAL
     Route: 065
  2. TRETINOIN. [Suspect]
     Active Substance: TRETINOIN
     Dosage: MAINTENANCE THERAPY ? ATRA 50 MG TWICE DAILY ; CYCLICAL
  3. ARSENIC TRIOXIDE [Suspect]
     Active Substance: ARSENIC TRIOXIDE
     Dosage: 45 MG, DAILY FOR 5 DAYS PER WEEK
  4. ARSENIC TRIOXIDE [Suspect]
     Active Substance: ARSENIC TRIOXIDE
     Indication: ACUTE PROMYELOCYTIC LEUKAEMIA
     Dosage: 0.15 MG/KG DAILY ; CYCLICAL
     Route: 065
  5. TRETINOIN. [Suspect]
     Active Substance: TRETINOIN
     Indication: ACUTE PROMYELOCYTIC LEUKAEMIA
     Dosage: 45 MG/M2 /DAY ?INDUCTION CHEMOTHERAPY ; CYCLICAL
     Route: 065
  6. CYTARABINE. [Concomitant]
     Active Substance: CYTARABINE
     Indication: ACUTE PROMYELOCYTIC LEUKAEMIA
     Dosage: 200 MG/M2 ? 7 DAYS
     Route: 065
  7. METHOTREXATE. [Suspect]
     Active Substance: METHOTREXATE
     Indication: ACUTE PROMYELOCYTIC LEUKAEMIA
     Dosage: MAINTENANCE THERAPY ? 15 MG  CYCLICAL
     Route: 065

REACTIONS (2)
  - Chromosomal deletion [Unknown]
  - Haematopoietic neoplasm [Recovered/Resolved]
